FAERS Safety Report 6541579-3 (Version None)
Quarter: 2010Q1

REPORT INFORMATION
  Report Type: 
  Country: None (occurrence: None)
  Receive Date: 20100119
  Receipt Date: 20100108
  Transmission Date: 20100710
  Serious: Yes (Hospitalization)
  Sender: FDA-Public Use
  Company Number: NL-MEDIMMUNE-MEDI-0010020

PATIENT
  Sex: Female
  Weight: 5.3 kg

DRUGS (2)
  1. SYNAGIS [Suspect]
     Dates: start: 20090903, end: 20091126
  2. SYNAGIS [Suspect]
     Dates: start: 20091223, end: 20091223

REACTIONS (4)
  - CONGENITAL LARYNGEAL STRIDOR [None]
  - DYSPNOEA [None]
  - RHINOVIRUS INFECTION [None]
  - WHEEZING [None]
